FAERS Safety Report 5499537-6 (Version None)
Quarter: 2007Q4

REPORT INFORMATION
  Report Type: 
  Country: None (occurrence: None)
  Receive Date: 20071026
  Receipt Date: 20071018
  Transmission Date: 20080405
  Serious: Yes (Other)
  Sender: FDA-Public Use
  Company Number: US-SHR-US-2007-039814

PATIENT
  Age: 27 Year
  Sex: Female
  Weight: 59.9 kg

DRUGS (1)
  1. MIRENA [Suspect]
     Indication: CONTRACEPTION
     Dosage: 20 A?G/DAY, CONT
     Route: 015
     Dates: start: 20071010, end: 20071011

REACTIONS (2)
  - ENDOMETRIOSIS [None]
  - UTERINE PERFORATION [None]
